FAERS Safety Report 9655533 (Version 1)
Quarter: 2013Q4

REPORT INFORMATION
  Report Type: Spontaneous
  Country: PL (occurrence: PL)
  Receive Date: 20131029
  Receipt Date: 20131029
  Transmission Date: 20140711
  Serious: Yes (Hospitalization)
  Sender: FDA-Public Use
  Company Number: PL-ELI_LILLY_AND_COMPANY-PL201310007732

PATIENT
  Age: 63 Year
  Sex: Female

DRUGS (6)
  1. HUMAN INSULIN (RDNA ORIGIN) NPH [Suspect]
     Indication: PRODUCT USED FOR UNKNOWN INDICATION
     Dosage: 20 U, EACH EVENING
     Route: 065
  2. HUMAN INSULIN (RDNA ORIGIN) [Suspect]
     Indication: PRODUCT USED FOR UNKNOWN INDICATION
     Dosage: 16 U, UNK
     Route: 065
  3. METFORMIN [Concomitant]
     Dosage: 850 MG, TID
  4. RAMIPRIL [Concomitant]
     Dosage: 5 MG, QD
  5. INDAPAMIDE [Concomitant]
     Dosage: UNK, EACH MORNING
  6. ROSUVASTATINE [Concomitant]
     Dosage: 10 MG, EACH EVENING

REACTIONS (5)
  - Blood glucose abnormal [Unknown]
  - Vertigo [Unknown]
  - Asthenia [Unknown]
  - Nausea [Unknown]
  - Blood glucose increased [Recovered/Resolved]
